FAERS Safety Report 9123978 (Version 1)
Quarter: 2013Q1

REPORT INFORMATION
  Report Type: Spontaneous
  Country: US (occurrence: US)
  Receive Date: 20130227
  Receipt Date: 20130227
  Transmission Date: 20140127
  Serious: Yes (Hospitalization, Other)
  Sender: FDA-Public Use
  Company Number: US-WATSON-2013-02778

PATIENT
  Age: 54 Year
  Sex: Female
  Weight: 49 kg

DRUGS (3)
  1. FENTANYL [Suspect]
     Indication: BACK PAIN
     Dosage: 1 PATCH EVERY 72 HRS
     Route: 062
     Dates: start: 20130122
  2. FENTANYL [Suspect]
     Dosage: 1 PATCH EVERY 72 HRS
     Route: 062
     Dates: start: 201201, end: 20130121
  3. VIIBRYD [Concomitant]
     Indication: DEPRESSION
     Dosage: 20 MG, BID
     Route: 048

REACTIONS (5)
  - Small intestinal obstruction [Recovered/Resolved]
  - Anaemia [Recovered/Resolved]
  - Convulsion [Recovered/Resolved]
  - Drug ineffective [Not Recovered/Not Resolved]
  - Application site erosion [Not Recovered/Not Resolved]
